FAERS Safety Report 6839558-1 (Version None)
Quarter: 2010Q3

REPORT INFORMATION
  Report Type: 
  Country: None (occurrence: None)
  Receive Date: 20100714
  Receipt Date: 20100216
  Transmission Date: 20110219
  Serious: No
  Sender: FDA-Public Use
  Company Number: A0844726A

PATIENT
  Age: 73 Year
  Sex: Female

DRUGS (7)
  1. FLOVENT [Suspect]
     Indication: ASTHMA
     Dosage: 2PUFF TWICE PER DAY
     Route: 055
  2. FOSAMAX [Concomitant]
  3. SINGULAIR [Concomitant]
  4. PREVACID [Concomitant]
  5. AXID [Concomitant]
  6. LIPITOR [Concomitant]
  7. ELIDEL [Concomitant]

REACTIONS (2)
  - BRONCHITIS [None]
  - SINUSITIS [None]
